FAERS Safety Report 17460944 (Version 2)
Quarter: 2020Q2

REPORT INFORMATION
  Report Type: Spontaneous
  Country: US (occurrence: US)
  Receive Date: 20200226
  Receipt Date: 20200522
  Transmission Date: 20200713
  Serious: Yes (Other)
  Sender: FDA-Public Use
  Company Number: US-ELI_LILLY_AND_COMPANY-US202002007570

PATIENT
  Age: 57 Year
  Sex: Male

DRUGS (3)
  1. CYMBALTA [Suspect]
     Active Substance: DULOXETINE HYDROCHLORIDE
     Indication: PSORIASIS
     Dosage: UNK, UNKNOWN
     Route: 065
  2. HUMIRA [Suspect]
     Active Substance: ADALIMUMAB
     Indication: PSORIASIS
  3. HUMIRA [Suspect]
     Active Substance: ADALIMUMAB
     Indication: PSORIATIC ARTHROPATHY
     Dosage: 40 MG, 2/M
     Route: 058
     Dates: start: 20190502

REACTIONS (12)
  - Off label use [Unknown]
  - Psoriasis [Unknown]
  - Muscle spasms [Unknown]
  - Pain in extremity [Not Recovered/Not Resolved]
  - Arthralgia [Recovering/Resolving]
  - Somnolence [Unknown]
  - Joint swelling [Recovering/Resolving]
  - Peripheral swelling [Not Recovered/Not Resolved]
  - Drug intolerance [Unknown]
  - Nasopharyngitis [Unknown]
  - Weight decreased [Unknown]
  - Joint stiffness [Recovering/Resolving]

NARRATIVE: CASE EVENT DATE: 2019
